FAERS Safety Report 5208997-7 (Version None)
Quarter: 2007Q1

REPORT INFORMATION
  Report Type: 
  Country: None (occurrence: None)
  Receive Date: 20070116
  Receipt Date: 20070108
  Transmission Date: 20070707
  Serious: Yes (Hospitalization)
  Sender: FDA-Public Use
  Company Number: FR-GLAXOSMITHKLINE-B0454087A

PATIENT
  Age: 85 Year
  Sex: Female

DRUGS (8)
  1. ARIXTRA [Suspect]
     Indication: DRUG USE FOR UNKNOWN INDICATION
     Dosage: 5MG PER DAY
     Route: 058
     Dates: start: 20061118, end: 20061207
  2. PLAVIX [Suspect]
     Dosage: 75MG PER DAY
     Route: 048
     Dates: start: 20060926, end: 20061207
  3. PAROXETINE HCL [Concomitant]
  4. SERETIDE [Concomitant]
  5. ZANIDIP [Concomitant]
  6. OMEPRAZOLE [Concomitant]
  7. SURBRONC [Concomitant]
  8. CACIT D3 [Concomitant]

REACTIONS (5)
  - DRUG INTERACTION [None]
  - JAUNDICE [None]
  - NORMOCHROMIC NORMOCYTIC ANAEMIA [None]
  - PALLOR [None]
  - TRAUMATIC HAEMATOMA [None]
